FAERS Safety Report 5028972-5 (Version None)
Quarter: 2006Q2

REPORT INFORMATION
  Report Type: 
  Country: None (occurrence: None)
  Receive Date: 20060501
  Receipt Date: 20060201
  Transmission Date: 20061013
  Serious: No
  Sender: FDA-Public Use
  Company Number: 200610894US

PATIENT
  Age: 18 Year
  Sex: Female

DRUGS (1)
  1. KETEK [Suspect]
     Indication: UPPER RESPIRATORY TRACT INFECTION
     Dosage: 800 MG PO
     Route: 048

REACTIONS (3)
  - FUNGAL INFECTION [None]
  - HEADACHE [None]
  - MALAISE [None]
